FAERS Safety Report 8857474 (Version 1)
Quarter: 2012Q4

REPORT INFORMATION
  Report Type: 
  Country: BR (occurrence: BR)
  Receive Date: 20121024
  Receipt Date: 20121024
  Transmission Date: 20130627
  Serious: Yes (Hospitalization)
  Sender: FDA-Public Use
  Company Number: BR-B.I. PHARMACEUTICALS,INC./RIDGEFIELD-2012-BR-01136BR

PATIENT
  Age: 88 Year
  Sex: Female

DRUGS (5)
  1. PRADAXA [Suspect]
     Indication: ANTICOAGULANT THERAPY
     Dosage: 110 mg
     Route: 048
     Dates: start: 201204
  2. ENALAPRIL [Concomitant]
     Indication: HYPERTENSION
  3. AMIODARONA [Concomitant]
     Indication: CARDIAC DISORDER
  4. LASIX [Concomitant]
     Indication: DIURETIC THERAPY
  5. PURAN T4 [Concomitant]
     Indication: THYROID DISORDER

REACTIONS (3)
  - Pneumonia [Recovered/Resolved]
  - Cough [Recovered/Resolved]
  - Platelet count decreased [Recovered/Resolved]
